FAERS Safety Report 5416468-8 (Version None)
Quarter: 2007Q3

REPORT INFORMATION
  Report Type: 
  Country: None (occurrence: None)
  Receive Date: 20070814
  Receipt Date: 20070807
  Transmission Date: 20080115
  Serious: Yes (Hospitalization)
  Sender: FDA-Public Use
  Company Number: GXKR2007DE05753

PATIENT
  Age: 46 Year
  Sex: Female
  Weight: 59.5 kg

DRUGS (1)
  1. AZITHROMYCIN [Suspect]
     Indication: SINUSITIS
     Dosage: 500 MG, QD, ORAL
     Route: 048
     Dates: start: 20070703, end: 20070707

REACTIONS (6)
  - ARTHRALGIA [None]
  - ARTHRITIS [None]
  - CELLULITIS [None]
  - ERYTHEMA NODOSUM [None]
  - GLOSSITIS [None]
  - PRURITUS [None]
